FAERS Safety Report 7951717-3 (Version None)
Quarter: 2011Q4

REPORT INFORMATION
  Report Type: 
  Country: None (occurrence: None)
  Receive Date: 20111201
  Receipt Date: 20111123
  Transmission Date: 20120403
  Serious: Yes (Other)
  Sender: FDA-Public Use
  Company Number: CH-JNJFOC-20111110612

PATIENT
  Age: 23 Year
  Sex: Female

DRUGS (3)
  1. ECONAZOLE NITRATE [Suspect]
     Indication: PRODUCT USED FOR UNKNOWN INDICATION
     Route: 067
  2. ITINEROL [Concomitant]
     Indication: NAUSEA
     Route: 065
  3. ELEVIT [Concomitant]
     Indication: PRODUCT USED FOR UNKNOWN INDICATION
     Route: 048

REACTIONS (3)
  - INAPPROPRIATE SCHEDULE OF DRUG ADMINISTRATION [None]
  - MEDICATION ERROR [None]
  - MATERNAL EXPOSURE DURING PREGNANCY [None]
